FAERS Safety Report 13631670 (Version 1)
Quarter: 2017Q2

REPORT INFORMATION
  Report Type: Report from Study
  Country: US (occurrence: US)
  Receive Date: 20170608
  Receipt Date: 20170608
  Transmission Date: 20170830
  Serious: Yes (Death, Hospitalization)
  Sender: FDA-Public Use
  Company Number: US-ACTELION-A-NJ2017-153669

PATIENT
  Age: 69 Year
  Sex: Female
  Weight: 113.83 kg

DRUGS (3)
  1. OPSUMIT [Suspect]
     Active Substance: MACITENTAN
     Indication: PULMONARY ARTERIAL HYPERTENSION
     Dosage: 10 MG, QD
     Route: 048
  2. WARFARIN [Concomitant]
     Active Substance: WARFARIN
  3. ORENITRAM [Concomitant]
     Active Substance: TREPROSTINIL

REACTIONS (8)
  - Nausea [Unknown]
  - Pulmonary arterial hypertension [Unknown]
  - Retching [Recovered/Resolved]
  - Feeling abnormal [Unknown]
  - Hypersomnia [Unknown]
  - Dyspnoea [Unknown]
  - Oxygen saturation decreased [Unknown]
  - Death [Fatal]

NARRATIVE: CASE EVENT DATE: 20170601
